FAERS Safety Report 8781633 (Version 3)
Quarter: 2012Q4

REPORT INFORMATION
  Report Type: 
  Country: JP (occurrence: JP)
  Receive Date: 20120913
  Receipt Date: 20121102
  Transmission Date: 20130627
  Serious: Yes (Hospitalization, Other)
  Sender: FDA-Public Use
  Company Number: JP-ASTELLAS-2012JP008413

PATIENT
  Age: 3 Year
  Sex: Female
  Weight: 10 kg

DRUGS (31)
  1. PROGRAF [Suspect]
     Indication: HEPATOSPLENIC T-CELL LYMPHOMA
     Dosage: 0.6 mg, bid
     Route: 048
     Dates: start: 20120424, end: 20120908
  2. PROGRAF [Suspect]
     Indication: LYMPHOCYTIC LEUKAEMIA
  3. PROGRAF [Suspect]
     Indication: MYELODYSPLASTIC SYNDROME
  4. PROGRAF [Suspect]
     Indication: HEPATOSPLENIC T-CELL LYMPHOMA
     Dosage: 0.2 mg, UID/QD
     Route: 041
     Dates: start: 20120321, end: 20120423
  5. PROGRAF [Suspect]
     Indication: LYMPHOCYTIC LEUKAEMIA
  6. PROGRAF [Suspect]
     Indication: MYELODYSPLASTIC SYNDROME
  7. BAKTAR [Concomitant]
     Indication: HEPATOSPLENIC T-CELL LYMPHOMA
     Dosage: 0.3 g, bid
     Route: 048
     Dates: start: 20111105
  8. BAKTAR [Concomitant]
     Indication: LYMPHOCYTIC LEUKAEMIA
  9. BAKTAR [Concomitant]
     Indication: MYELODYSPLASTIC SYNDROME
  10. BAKTAR [Concomitant]
     Indication: ANTIFUNGAL PROPHYLAXIS
  11. DIFLUCAN [Concomitant]
     Indication: HEPATOSPLENIC T-CELL LYMPHOMA
     Dosage: 40 mg, UID/QD
     Route: 048
     Dates: start: 20111105
  12. DIFLUCAN [Concomitant]
     Indication: LYMPHOCYTIC LEUKAEMIA
  13. DIFLUCAN [Concomitant]
     Indication: MYELODYSPLASTIC SYNDROME
  14. DIFLUCAN [Concomitant]
     Indication: ANTIFUNGAL PROPHYLAXIS
  15. MIYA-BM [Concomitant]
     Indication: HEPATOSPLENIC T-CELL LYMPHOMA
     Dosage: UNK g, Unknown/D
     Route: 048
     Dates: start: 20120425
  16. MIYA-BM [Concomitant]
     Indication: LYMPHOCYTIC LEUKAEMIA
  17. MIYA-BM [Concomitant]
     Indication: MYELODYSPLASTIC SYNDROME
  18. METHOTREXATE [Concomitant]
     Indication: HEPATOSPLENIC T-CELL LYMPHOMA
     Dosage: 5.2 mg, UID/QD
     Route: 042
     Dates: start: 20120323, end: 20120323
  19. METHOTREXATE [Concomitant]
     Indication: LYMPHOCYTIC LEUKAEMIA
     Dosage: 3.6 mg, UID/QD
     Route: 042
     Dates: start: 20120325, end: 20120402
  20. METHOTREXATE [Concomitant]
     Indication: MYELODYSPLASTIC SYNDROME
  21. FUNGUARD [Concomitant]
     Indication: HEPATOSPLENIC T-CELL LYMPHOMA
     Dosage: 35 mg, UID/QD
     Route: 041
     Dates: start: 20120315, end: 20120419
  22. FUNGUARD [Concomitant]
     Indication: LYMPHOCYTIC LEUKAEMIA
  23. FUNGUARD [Concomitant]
     Indication: MYELODYSPLASTIC SYNDROME
  24. FUNGUARD [Concomitant]
     Indication: ANTIFUNGAL PROPHYLAXIS
  25. MEROPEN                            /01250501/ [Concomitant]
     Indication: HEPATOSPLENIC T-CELL LYMPHOMA
     Dosage: UNK
     Route: 041
     Dates: start: 20120328, end: 20120417
  26. MEROPEN                            /01250501/ [Concomitant]
     Indication: LYMPHOCYTIC LEUKAEMIA
  27. MEROPEN                            /01250501/ [Concomitant]
     Indication: MYELODYSPLASTIC SYNDROME
  28. MEROPEN                            /01250501/ [Concomitant]
     Indication: FEBRILE NEUTROPENIA
  29. GASMOTIN [Concomitant]
     Indication: HEPATOSPLENIC T-CELL LYMPHOMA
     Dosage: 1.5 mg, tid
     Route: 048
     Dates: start: 20120507
  30. GASMOTIN [Concomitant]
     Indication: LYMPHOCYTIC LEUKAEMIA
  31. GASMOTIN [Concomitant]
     Indication: MYELODYSPLASTIC SYNDROME

REACTIONS (8)
  - Eosinophil count increased [Recovering/Resolving]
  - Vomiting [Recovering/Resolving]
  - Diarrhoea [Recovering/Resolving]
  - Haematochezia [Recovering/Resolving]
  - Herpes zoster [Recovering/Resolving]
  - Liver disorder [Recovering/Resolving]
  - Post transplant lymphoproliferative disorder [Recovering/Resolving]
  - Gastrointestinal inflammation [Recovering/Resolving]
